FAERS Safety Report 9525696 (Version 1)
Quarter: 2013Q3

REPORT INFORMATION
  Report Type: Other
  Country: US (occurrence: US)
  Receive Date: 20130916
  Receipt Date: 20130916
  Transmission Date: 20140515
  Serious: Yes (Other)
  Sender: FDA-Public Use
  Company Number: US-PURDUE-USA-2013-0106296

PATIENT
  Age: 71 Year
  Sex: Female

DRUGS (4)
  1. DRONABINOL CAPSULES [Suspect]
     Indication: DECREASED APPETITE
     Dosage: 10 MG, TID
  2. DRONABINOL CAPSULES [Suspect]
     Dosage: UNK
  3. METHYLPHENIDATE [Suspect]
     Indication: PRODUCT USED FOR UNKNOWN INDICATION
  4. DULOXETINE [Suspect]

REACTIONS (12)
  - Delirium [Recovering/Resolving]
  - Hallucination, visual [Recovering/Resolving]
  - Drug withdrawal syndrome [Recovering/Resolving]
  - Tremor [Recovering/Resolving]
  - Abdominal pain upper [Recovering/Resolving]
  - Sleep disorder [Recovering/Resolving]
  - Decreased appetite [Recovering/Resolving]
  - Nausea [Recovering/Resolving]
  - Anxiety [Recovering/Resolving]
  - Depressed mood [Recovering/Resolving]
  - Hyperhidrosis [Recovering/Resolving]
  - Drug ineffective [Unknown]
